FAERS Safety Report 19471043 (Version 3)
Quarter: 2021Q3

REPORT INFORMATION
  Report Type: Report from Study
  Country: JP (occurrence: JP)
  Receive Date: 20210629
  Receipt Date: 20210721
  Transmission Date: 20211014
  Serious: Yes (Death)
  Sender: FDA-Public Use
  Company Number: JP-BAUSCH-BL-2021-021683

PATIENT
  Age: 50 Year
  Sex: Male
  Weight: 51 kg

DRUGS (8)
  1. DEMSER [Suspect]
     Active Substance: METYROSINE
     Dosage: EVERYDAY. 500 MG/IN THE MORNING AND EVENING, 250 MG/IN THE AFTERNOON AND BEFORE BEDTIME
     Route: 048
     Dates: start: 20190605
  2. DEMSER [Suspect]
     Active Substance: METYROSINE
     Dosage: 250 MG/ IN THE MORNING, AFTERNOON, EVENING, AND BEFORE BEDTIME
     Route: 048
     Dates: start: 20190415, end: 20190604
  3. ONCOVIN [Concomitant]
     Active Substance: VINCRISTINE SULFATE
     Indication: PRODUCT USED FOR UNKNOWN INDICATION
     Dates: start: 2012, end: 202004
  4. CARDENALIN [Concomitant]
     Active Substance: DOXAZOSIN MESYLATE
     Indication: PRODUCT USED FOR UNKNOWN INDICATION
  5. DEMSER [Suspect]
     Active Substance: METYROSINE
     Indication: BLOOD CATECHOLAMINES INCREASED
     Dosage: 250 MG/ IN THE MORNING AND EVENING
     Route: 048
     Dates: start: 20190412, end: 20190414
  6. DEMSER [Suspect]
     Active Substance: METYROSINE
     Route: 048
  7. DACARBAZINE. [Concomitant]
     Active Substance: DACARBAZINE
     Indication: PRODUCT USED FOR UNKNOWN INDICATION
     Dates: start: 2012, end: 202004
  8. ENDOXAN [Concomitant]
     Active Substance: CYCLOPHOSPHAMIDE
     Indication: PRODUCT USED FOR UNKNOWN INDICATION
     Dates: start: 2012, end: 202004

REACTIONS (1)
  - Phaeochromocytoma malignant [Fatal]
